FAERS Safety Report 25623268 (Version 2)
Quarter: 2025Q3

REPORT INFORMATION
  Report Type: Spontaneous
  Country: US (occurrence: US)
  Receive Date: 20250730
  Receipt Date: 20250808
  Transmission Date: 20251021
  Serious: Yes (Other)
  Sender: PHARMING GROUP
  Company Number: US-PHARMING-PHAUS2025001085

PATIENT

DRUGS (1)
  1. JOENJA [Suspect]
     Active Substance: LENIOLISIB PHOSPHATE
     Indication: Product used for unknown indication
     Dosage: 70 MILLIGRAM, BID

REACTIONS (3)
  - Pneumonia pseudomonal [Unknown]
  - Cardiac disorder [Unknown]
  - Blood pressure fluctuation [Unknown]
